FAERS Safety Report 6420970-X (Version None)
Quarter: 2009Q4

REPORT INFORMATION
  Report Type: 
  Country: None (occurrence: None)
  Receive Date: 20091030
  Receipt Date: 20091023
  Transmission Date: 20100525
  Serious: Yes (Hospitalization)
  Sender: FDA-Public Use
  Company Number: JP-ASTRAZENECA-2009SE22450

PATIENT
  Age: 60 Year
  Sex: Male

DRUGS (4)
  1. IRESSA [Suspect]
     Indication: NON-SMALL CELL LUNG CANCER
     Route: 048
     Dates: start: 20090804
  2. CARBOPLATIN [Concomitant]
     Indication: NON-SMALL CELL LUNG CANCER
  3. GEMZAR [Concomitant]
     Indication: NON-SMALL CELL LUNG CANCER
  4. TAXOL [Concomitant]
     Indication: NON-SMALL CELL LUNG CANCER

REACTIONS (2)
  - ABDOMINAL PAIN [None]
  - DIARRHOEA [None]
